FAERS Safety Report 23799529 (Version 1)
Quarter: 2024Q2

REPORT INFORMATION
  Report Type: Spontaneous
  Country: US (occurrence: None)
  Receive Date: 20240428
  Receipt Date: 20240428
  Transmission Date: 20240716
  Serious: Yes (Disabling, Other)
  Sender: FDA-Public Use
  Company Number: None

PATIENT
  Age: 58 Year
  Sex: Female
  Weight: 70.2 kg

DRUGS (15)
  1. AIMOVIG [Suspect]
     Active Substance: ERENUMAB-AOOE
     Indication: Migraine
  2. LYRICA [Concomitant]
     Active Substance: PREGABALIN
  3. ARMOUR THYROID [Concomitant]
     Active Substance: THYROID, PORCINE
  4. SEROQUEL [Concomitant]
     Active Substance: QUETIAPINE FUMARATE
  5. VYEPTI [Concomitant]
     Active Substance: EPTINEZUMAB-JJMR
  6. CLONAZEPAM [Concomitant]
     Active Substance: CLONAZEPAM
  7. ESTRADIOL [Concomitant]
     Active Substance: ESTRADIOL
  8. ADDERALL [Concomitant]
  9. NEVRO HFX SPINAL CORD STIMULATOR [Concomitant]
  10. VITAMIN C [Concomitant]
     Active Substance: ASCORBIC ACID
  11. VITAMIN D [Concomitant]
     Active Substance: VITAMIN D NOS
  12. VITAMINS [Concomitant]
     Active Substance: VITAMINS
  13. BIOTIN [Concomitant]
     Active Substance: BIOTIN
  14. NM-6603 [Concomitant]
     Active Substance: NM-6603
  15. MAGNESIUM [Concomitant]
     Active Substance: MAGNESIUM

REACTIONS (1)
  - Complex regional pain syndrome [None]

NARRATIVE: CASE EVENT DATE: 20181215
